FAERS Safety Report 14391811 (Version 16)
Quarter: 2022Q4

REPORT INFORMATION
  Report Type: Report from Study
  Country: GB (occurrence: GB)
  Receive Date: 20180116
  Receipt Date: 20221110
  Transmission Date: 20230113
  Serious: Yes (Death, Hospitalization, Other)
  Sender: FDA-Public Use
  Company Number: GB-CELGENE-GBR-2016031205

PATIENT

DRUGS (37)
  1. ALLOPURINOL [Suspect]
     Active Substance: ALLOPURINOL
     Indication: Prophylaxis
     Dosage: 200 MG, QD
     Route: 048
     Dates: start: 20160223, end: 20160228
  2. ALLOPURINOL [Suspect]
     Active Substance: ALLOPURINOL
     Indication: Plasma cell myeloma
     Dosage: 3 MG, QD
     Route: 048
     Dates: start: 20160223, end: 20160321
  3. ALLOPURINOL [Suspect]
     Active Substance: ALLOPURINOL
     Dosage: 3 MG, QD
     Route: 048
     Dates: start: 20160223, end: 20160228
  4. ALLOPURINOL [Suspect]
     Active Substance: ALLOPURINOL
     Dosage: 40 MG, 1 DOSE WEEKLY
     Route: 048
     Dates: start: 20160315
  5. ALLOPURINOL [Suspect]
     Active Substance: ALLOPURINOL
     Dosage: 40 MG, WEEKLY
     Route: 048
     Dates: start: 20160223, end: 20160321
  6. ALLOPURINOL [Suspect]
     Active Substance: ALLOPURINOL
     Dosage: 40 MG, QD
     Route: 048
     Dates: start: 20160223, end: 20160228
  7. ALLOPURINOL [Suspect]
     Active Substance: ALLOPURINOL
     Dosage: 40 MG, QD
     Route: 048
     Dates: start: 20160315
  8. ALLOPURINOL [Suspect]
     Active Substance: ALLOPURINOL
     Dosage: 40 MG, 1 DOSE WEEKLY
     Route: 048
     Dates: start: 20160223, end: 20160228
  9. ALLOPURINOL [Suspect]
     Active Substance: ALLOPURINOL
     Dosage: 200 MG, QD
     Route: 048
     Dates: start: 20160223, end: 20160321
  10. DEXAMETHASONE [Suspect]
     Active Substance: DEXAMETHASONE
     Indication: Plasma cell myeloma
     Dosage: 40 MG, 1 DOSE WEEKLY
     Route: 048
     Dates: start: 20160223, end: 20160315
  11. DEXAMETHASONE [Suspect]
     Active Substance: DEXAMETHASONE
     Dosage: 40 MG(RECEIVED TILL 2-MAR-2016 AND ALSO RECEIVED 15-MAR-2016 (8 DAYS), 5.7143 MILLIGRAM)
     Route: 048
     Dates: start: 20160223, end: 20160302
  12. DEXAMETHASONE [Suspect]
     Active Substance: DEXAMETHASONE
     Dosage: 40 MG
     Route: 065
  13. DEXAMETHASONE [Suspect]
     Active Substance: DEXAMETHASONE
     Dosage: 40 MG
     Route: 065
  14. DEXAMETHASONE [Suspect]
     Active Substance: DEXAMETHASONE
     Dosage: 40 MG
     Route: 065
  15. DEXAMETHASONE [Suspect]
     Active Substance: DEXAMETHASONE
     Dosage: 40 MILLIGRAM, EVERY WEEK, RECEIVED TILL 2-MAR-2016
     Route: 048
     Dates: start: 20160223, end: 20160315
  16. DEXAMETHASONE [Suspect]
     Active Substance: DEXAMETHASONE
     Dosage: 40 MG, QD
     Route: 065
     Dates: start: 20160315
  17. DEXAMETHASONE [Suspect]
     Active Substance: DEXAMETHASONE
     Dosage: 5.71 MG
     Route: 048
     Dates: start: 20160315, end: 20160322
  18. DEXAMETHASONE [Suspect]
     Active Substance: DEXAMETHASONE
     Dosage: 5.71 MG, 1 DOSE WEEKLY
     Route: 048
     Dates: start: 20160223, end: 20160302
  19. DEXAMETHASONE [Suspect]
     Active Substance: DEXAMETHASONE
     Dosage: 5.71 MG, 1 DOSE WEEKLY
     Route: 048
     Dates: start: 20160223
  20. DEXAMETHASONE [Suspect]
     Active Substance: DEXAMETHASONE
     Indication: Product used for unknown indication
     Dosage: 40 MG(RECIEVED TILL 02-MAR-2016 AND ALSO RECEIVED 15-MAR-2016(8DAYS) 5.7143MG)
     Route: 065
     Dates: start: 20160315, end: 20160322
  21. LENALIDOMIDE [Suspect]
     Active Substance: LENALIDOMIDE
     Indication: Prophylaxis
     Dosage: 200 MG, QD
     Route: 048
     Dates: start: 20160223
  22. LENALIDOMIDE [Suspect]
     Active Substance: LENALIDOMIDE
     Dosage: 40 MG, QD 200MG
     Route: 048
     Dates: start: 20160223, end: 20160228
  23. POMALIDOMIDE [Suspect]
     Active Substance: POMALIDOMIDE
     Indication: Plasma cell myeloma
     Dosage: 4 MG
     Route: 048
     Dates: start: 20160223, end: 20160321
  24. POMALIDOMIDE [Suspect]
     Active Substance: POMALIDOMIDE
     Dosage: 3 MILLIGRAM, ALSO RECEIVED ON 28-FEB-2016; ALSO RECEIVED 4 MG
     Route: 048
     Dates: start: 20160223, end: 20160228
  25. POMALIDOMIDE [Suspect]
     Active Substance: POMALIDOMIDE
     Dosage: 84 MG, 28 DAYS (3 MILLIGRAM)
     Route: 048
     Dates: start: 20160223, end: 20160315
  26. POMALIDOMIDE [Suspect]
     Active Substance: POMALIDOMIDE
     Dosage: 84 MILLIGRAM, 28 DAYS (3 MILLIGRAM)
     Route: 048
     Dates: start: 20160223, end: 20160228
  27. POMALIDOMIDE [Suspect]
     Active Substance: POMALIDOMIDE
     Dosage: 63 MG
     Route: 048
     Dates: start: 20160223, end: 20160315
  28. POMALIDOMIDE [Suspect]
     Active Substance: POMALIDOMIDE
     Dosage: 84 MG , 3 MILLIGRAM, ALSO RECEIVED ON 28-FEB-2016; ALSO RECEIVED 4 MG
     Route: 048
     Dates: start: 20160223, end: 20160321
  29. POMALIDOMIDE [Suspect]
     Active Substance: POMALIDOMIDE
     Dosage: 84 MILLIGRAM, 28 DAYS (3 MILLIGRAM)
     Route: 048
     Dates: start: 20160223, end: 20160228
  30. POMALIDOMIDE [Suspect]
     Active Substance: POMALIDOMIDE
     Dosage: 40 MG RECEIVED TILL 2-MAR-2016 AND ALSO RECEIVED TILL 08-MAR-2016(8DAYS) 5.7143MG
     Route: 048
     Dates: start: 20160315
  31. POMALIDOMIDE [Suspect]
     Active Substance: POMALIDOMIDE
     Dosage: 84 MG (28 DAY)
     Route: 048
     Dates: start: 20160228
  32. POMALIDOMIDE [Suspect]
     Active Substance: POMALIDOMIDE
     Dosage: 40 MG RECEIVED TILL 2-MAR-2016 AND ALSO RECEIVED TILL 08-MAR-2016(8DAYS) 5.7143MG
     Route: 048
     Dates: end: 20160223
  33. OMEPRAZOLE [Concomitant]
     Active Substance: OMEPRAZOLE
     Indication: Product used for unknown indication
     Dosage: 20 MG, QD
     Route: 048
     Dates: start: 20160223
  34. DALTEPARIN [Concomitant]
     Active Substance: DALTEPARIN
     Indication: Anticoagulant therapy
     Dosage: 5000 IU
     Route: 065
     Dates: start: 20160223, end: 20160302
  35. DALTEPARIN [Concomitant]
     Active Substance: DALTEPARIN
     Route: 065
  36. DALTEPARIN [Concomitant]
     Active Substance: DALTEPARIN
     Route: 065
  37. DALTEPARIN [Concomitant]
     Active Substance: DALTEPARIN
     Route: 065

REACTIONS (10)
  - Off label use [Fatal]
  - Intentional product misuse [Fatal]
  - Plasma cell myeloma [Fatal]
  - Bone marrow failure [Fatal]
  - Pneumonia [Fatal]
  - Neutropenia [Fatal]
  - Acute kidney injury [Fatal]
  - Rash [Fatal]
  - Thrombocytopenia [Fatal]
  - Condition aggravated [Fatal]

NARRATIVE: CASE EVENT DATE: 20160301
